FAERS Safety Report 5613976-1 (Version None)
Quarter: 2008Q1

REPORT INFORMATION
  Report Type: 
  Country: None (occurrence: None)
  Receive Date: 20080205
  Receipt Date: 20080127
  Transmission Date: 20080703
  Serious: Yes (Disabling)
  Sender: FDA-Public Use
  Company Number: IR-ASTRAZENECA-2008SE00222

PATIENT
  Age: 46 Year
  Sex: Female

DRUGS (1)
  1. MARCAINE [Suspect]
     Indication: SPINAL ANAESTHESIA
     Route: 037

REACTIONS (1)
  - CAUDA EQUINA SYNDROME [None]
